FAERS Safety Report 14636231 (Version 1)
Quarter: 2018Q1

REPORT INFORMATION
  Report Type: Not Available
  Country: US (occurrence: US)
  Receive Date: 20180314
  Receipt Date: 20180314
  Transmission Date: 20180509
  Serious: No
  Sender: FDA-Public Use
  Company Number: US-FOUNDATIONCONSUMERHC-2018-US-001732

PATIENT
  Sex: Female

DRUGS (3)
  1. TAKE ACTION [Suspect]
     Active Substance: LEVONORGESTREL
  2. TAKE ACTION [Suspect]
     Active Substance: LEVONORGESTREL
  3. TAKE ACTION [Suspect]
     Active Substance: LEVONORGESTREL

REACTIONS (1)
  - Nausea [Unknown]
